FAERS Safety Report 19070527 (Version 1)
Quarter: 2021Q1

REPORT INFORMATION
  Report Type: Spontaneous
  Country: CA (occurrence: CA)
  Receive Date: 20210330
  Receipt Date: 20210330
  Transmission Date: 20210420
  Serious: Yes (Life-Threatening, Hospitalization)
  Sender: FDA-Public Use
  Company Number: CA-ABBVIE-21K-028-3835540-00

PATIENT
  Sex: Female
  Weight: 73 kg

DRUGS (2)
  1. AZATHIOPRINE. [Concomitant]
     Active Substance: AZATHIOPRINE
     Indication: PRODUCT USED FOR UNKNOWN INDICATION
  2. HUMIRA [Suspect]
     Active Substance: ADALIMUMAB
     Indication: PRODUCT USED FOR UNKNOWN INDICATION
     Route: 058

REACTIONS (6)
  - Dizziness [Unknown]
  - IIIrd nerve paralysis [Unknown]
  - Vision blurred [Unknown]
  - Eyelid ptosis [Unknown]
  - Brain scan abnormal [Unknown]
  - Central nervous system lymphoma [Unknown]
